FAERS Safety Report 8349740-2 (Version None)
Quarter: 2012Q2

REPORT INFORMATION
  Report Type: 
  Country: None (occurrence: None)
  Receive Date: 20120510
  Receipt Date: 20111110
  Transmission Date: 20120825
  Serious: Yes (Hospitalization, Other)
  Sender: FDA-Public Use
  Company Number: US-CELGENEUS-163-21880-11110333

PATIENT
  Age: 78 Year
  Sex: Female
  Weight: 62.6 kg

DRUGS (10)
  1. DEXAMETHASONE [Suspect]
     Dosage: 20 MILLIGRAM
     Route: 048
     Dates: start: 20110712
  2. REVLIMID [Suspect]
     Dosage: 25 MILLIGRAM
     Route: 048
     Dates: start: 20111004, end: 20111017
  3. DEXAMETHASONE [Suspect]
     Dosage: 20 MILLIGRAM
     Route: 048
     Dates: start: 20111004, end: 20111015
  4. BORTEZOMIB [Suspect]
     Dosage: 1.3 MILLIGRAM/SQ. METER
     Route: 041
     Dates: start: 20110712
  5. BORTEZOMIB [Suspect]
     Dosage: 1.3 MILLIGRAM/SQ. METER
     Route: 041
     Dates: start: 20111004, end: 20111014
  6. REVLIMID [Suspect]
     Dosage: 25 MILLIGRAM
     Route: 048
     Dates: start: 20110712
  7. ASPIRIN [Concomitant]
     Dosage: 325 MILLIGRAM
     Route: 048
     Dates: start: 20110712
  8. KEPPRA [Concomitant]
     Route: 065
     Dates: start: 20111102
  9. ATENOLOL [Concomitant]
     Dosage: 50 MILLIGRAM
     Route: 065
     Dates: start: 20111031
  10. ASPIRIN [Concomitant]
     Dosage: 325 MILLIGRAM
     Route: 048
     Dates: start: 20111004

REACTIONS (4)
  - HYPERTENSION [None]
  - ABSCESS SOFT TISSUE [None]
  - STATUS EPILEPTICUS [None]
  - HYPOKALAEMIA [None]
